FAERS Safety Report 10739406 (Version 1)
Quarter: 2015Q1

REPORT INFORMATION
  Report Type: Spontaneous
  Country: US (occurrence: US)
  Receive Date: 20150126
  Receipt Date: 20150126
  Transmission Date: 20150721
  Serious: No
  Sender: FDA-Public Use
  Company Number: US-GLAXOSMITHKLINE-US2015GSK007720

PATIENT
  Sex: Female

DRUGS (1)
  1. LAMOTRIGINE. [Suspect]
     Active Substance: LAMOTRIGINE
     Indication: BIPOLAR DISORDER
     Dosage: UNK
     Dates: start: 2004

REACTIONS (6)
  - Headache [Recovered/Resolved]
  - General physical health deterioration [Recovered/Resolved]
  - Mood swings [Recovered/Resolved]
  - Abdominal discomfort [Unknown]
  - Muscle spasms [Recovered/Resolved]
  - Drug ineffective [Unknown]
